FAERS Safety Report 22202643 (Version 1)
Quarter: 2023Q2

REPORT INFORMATION
  Report Type: Spontaneous
  Country: CN (occurrence: None)
  Receive Date: 20230412
  Receipt Date: 20230412
  Transmission Date: 20230722
  Serious: Yes (Other)
  Sender: FDA-Public Use
  Company Number: 2023A059981

PATIENT
  Age: 70 Year
  Sex: Female

DRUGS (1)
  1. TAGRISSO [Suspect]
     Active Substance: OSIMERTINIB
     Indication: Lung neoplasm malignant
     Route: 048

REACTIONS (9)
  - Malignant neoplasm progression [Unknown]
  - Computerised tomogram abdomen abnormal [Unknown]
  - Scab [Unknown]
  - Abdominal discomfort [Unknown]
  - Discomfort [Unknown]
  - Rash macular [Recovered/Resolved]
  - Drug ineffective [Unknown]
  - Suspected counterfeit product [Unknown]
  - Product packaging issue [Unknown]
